FAERS Safety Report 7297187-2 (Version None)
Quarter: 2011Q1

REPORT INFORMATION
  Report Type: 
  Country: None (occurrence: None)
  Receive Date: 20110216
  Receipt Date: 20110212
  Transmission Date: 20110831
  Serious: No
  Sender: FDA-Public Use
  Company Number: US-PFIZER INC-2011032497

PATIENT
  Sex: Male

DRUGS (1)
  1. ARTHROTEC [Suspect]
     Dosage: 0.2 MG ABOUT 9-930 PM

REACTIONS (1)
  - SLEEP DISORDER [None]
